FAERS Safety Report 10835656 (Version 1)
Quarter: 2015Q1

REPORT INFORMATION
  Report Type: Report from Study
  Country: US (occurrence: US)
  Receive Date: 20150219
  Receipt Date: 20150219
  Transmission Date: 20150721
  Serious: Yes (Other)
  Sender: FDA-Public Use
  Company Number: US-ABBVIE-14P-163-1203868-00

PATIENT
  Age: 80 Year
  Sex: Female

DRUGS (1)
  1. HUMIRA [Suspect]
     Active Substance: ADALIMUMAB
     Indication: PSORIASIS
     Dates: start: 20110822, end: 20120724

REACTIONS (3)
  - Cholangiocarcinoma [Recovering/Resolving]
  - Atrial fibrillation [Unknown]
  - Retching [Unknown]

NARRATIVE: CASE EVENT DATE: 201208
